FAERS Safety Report 9159626 (Version 1)
Quarter: 2013Q1

REPORT INFORMATION
  Report Type: Spontaneous
  Country: GB (occurrence: None)
  Receive Date: 20130214
  Receipt Date: 20130214
  Transmission Date: 20140127
  Serious: Yes (Hospitalization)
  Sender: FDA-Public Use
  Company Number: ACO_34180_2013

PATIENT
  Age: 52 Year
  Sex: Female

DRUGS (3)
  1. FAMPYRA (DALFAMPRIDINE) TABLET, 10MG [Suspect]
     Indication: MULTIPLE SCLEROSIS
     Route: 048
     Dates: start: 201205
  2. IBUPROFEN (IBUPROFEN) [Concomitant]
  3. AVONEX (INTERFERON BETA-1A) [Concomitant]

REACTIONS (2)
  - Angina pectoris [None]
  - Myalgia [None]
